FAERS Safety Report 24032976 (Version 1)
Quarter: 2024Q3

REPORT INFORMATION
  Report Type: Spontaneous
  Country: GB (occurrence: GB)
  Receive Date: 20240701
  Receipt Date: 20240701
  Transmission Date: 20241016
  Serious: Yes (Other)
  Sender: NOVO NORDISK
  Company Number: None

PATIENT
  Age: 36 Year
  Sex: Female
  Weight: 83 kg

DRUGS (2)
  1. WEGOVY [Interacting]
     Active Substance: SEMAGLUTIDE
     Indication: Weight control
     Dosage: 1 MG, QW(1MG INJECTION ONCE PER WEEK)
     Dates: start: 20240401, end: 20240614
  2. SULFASALAZINE [Interacting]
     Active Substance: SULFASALAZINE
     Indication: Rheumatoid arthritis
     Dosage: UNK

REACTIONS (5)
  - Urine ketone body [Recovering/Resolving]
  - Blood ketone body [Recovered/Resolved]
  - Urinary retention [Recovered/Resolved]
  - Abdominal pain [Recovering/Resolving]
  - Medication error [Unknown]

NARRATIVE: CASE EVENT DATE: 20240614
